FAERS Safety Report 16827071 (Version 9)
Quarter: 2019Q4

REPORT INFORMATION
  Report Type: Report from Study
  Country: DE (occurrence: DE)
  Receive Date: 20190919
  Receipt Date: 20191217
  Transmission Date: 20200122
  Serious: Yes (Hospitalization)
  Sender: FDA-Public Use
  Company Number: DE-ROCHE-1764639

PATIENT
  Age: 57 Year
  Sex: Male
  Weight: 85 kg

DRUGS (100)
  1. OCRELIZUMAB. [Suspect]
     Active Substance: OCRELIZUMAB
     Indication: PRIMARY PROGRESSIVE MULTIPLE SCLEROSIS
     Dosage: ALSO RECEIVED ON 16/MAY/2012 (200 ML) 18/OCT/2012 (200 ML), 01/NOV/2012 (200 ML), 04/APR/2013 (260 M
     Route: 042
     Dates: start: 20120502, end: 20150805
  2. AMOXICILLIN. [Concomitant]
     Active Substance: AMOXICILLIN
     Indication: ROOT CANAL INFECTION
     Route: 065
     Dates: start: 20180809, end: 20180813
  3. DORMICUM (INJ) [Concomitant]
     Active Substance: MIDAZOLAM HYDROCHLORIDE
     Indication: INCONTINENCE
     Dosage: INDICATION: BOTOX INJECTION IN BLADDER
     Route: 065
     Dates: start: 20160208, end: 20160208
  4. IBUPROFEN. [Concomitant]
     Active Substance: IBUPROFEN
     Indication: TOOTH EXTRACTION
     Route: 065
     Dates: start: 20171103, end: 20171103
  5. IBUPROFEN. [Concomitant]
     Active Substance: IBUPROFEN
     Route: 065
     Dates: start: 20170910, end: 20170911
  6. NOVALGIN (METAMIZOLE SODIUM) [Concomitant]
     Active Substance: METAMIZOLE SODIUM
     Indication: HEADACHE
     Route: 065
     Dates: start: 20190607, end: 20190607
  7. NOVAMINSULFON [Concomitant]
     Active Substance: METAMIZOLE
     Route: 065
     Dates: start: 20190106, end: 20190106
  8. NOVAMINSULFON [Concomitant]
     Active Substance: METAMIZOLE
     Route: 065
     Dates: start: 20190122, end: 20190123
  9. NOVAMINSULFON [Concomitant]
     Active Substance: METAMIZOLE
     Route: 065
     Dates: start: 20190727, end: 20190728
  10. TRIAMHEXAL [Concomitant]
     Active Substance: TRIAMCINOLONE
     Route: 065
     Dates: start: 20170608, end: 20170608
  11. TRIAMHEXAL [Concomitant]
     Active Substance: TRIAMCINOLONE
     Route: 065
     Dates: start: 20190204, end: 20190204
  12. FRAGMIN [Concomitant]
     Active Substance: DALTEPARIN SODIUM
     Indication: PULMONARY EMBOLISM
     Route: 065
     Dates: start: 20171019, end: 20171022
  13. RAMIPRIL. [Concomitant]
     Active Substance: RAMIPRIL
     Route: 065
  14. FENISTIL [Concomitant]
     Active Substance: DIMETHINDENE
     Indication: PREMEDICATION
     Dosage: ON 25/SEP/2019
     Route: 065
  15. CARBOSTESIN [Concomitant]
     Active Substance: BUPIVACAINE HYDROCHLORIDE
     Indication: BACK PAIN
     Route: 065
     Dates: start: 20170504, end: 20170504
  16. CARBOSTESIN [Concomitant]
     Active Substance: BUPIVACAINE HYDROCHLORIDE
     Route: 065
     Dates: start: 20171113, end: 20171113
  17. CARBOSTESIN [Concomitant]
     Active Substance: BUPIVACAINE HYDROCHLORIDE
     Route: 065
     Dates: start: 20180628, end: 20180628
  18. FAMPRIDINE [Concomitant]
     Active Substance: DALFAMPRIDINE
     Indication: MULTIPLE SCLEROSIS
     Route: 065
     Dates: start: 20110928
  19. IBUPROFEN. [Concomitant]
     Active Substance: IBUPROFEN
     Route: 065
     Dates: start: 20180507
  20. IBUPROFEN. [Concomitant]
     Active Substance: IBUPROFEN
     Route: 065
     Dates: start: 20171022, end: 20171022
  21. NOVAMINSULFON [Concomitant]
     Active Substance: METAMIZOLE
     Route: 065
     Dates: start: 20181107, end: 20181107
  22. NOVAMINSULFON [Concomitant]
     Active Substance: METAMIZOLE
     Route: 065
     Dates: start: 20180827, end: 20180827
  23. CIPROBAY [CIPROFLOXACIN] [Concomitant]
     Route: 065
     Dates: start: 20170409, end: 20170414
  24. CIPROBAY [CIPROFLOXACIN] [Concomitant]
     Route: 065
     Dates: start: 20180308, end: 20180308
  25. RANITIDINE. [Concomitant]
     Active Substance: RANITIDINE
     Route: 065
     Dates: start: 20160621
  26. RANITIDIN [Concomitant]
     Active Substance: RANITIDINE HYDROCHLORIDE
     Route: 065
     Dates: start: 20160105
  27. TORASEMIDE [Concomitant]
     Active Substance: TORSEMIDE
     Indication: HYPERTENSION
     Route: 065
     Dates: start: 20160811
  28. METHYLPREDNISOLONE. [Concomitant]
     Active Substance: METHYLPREDNISOLONE
     Indication: PREMEDICATION
     Route: 065
  29. BOTOX [Concomitant]
     Active Substance: ONABOTULINUMTOXINA
     Dosage: DOSE: 180
     Route: 065
     Dates: start: 20180924, end: 20180924
  30. CEFUROXIM [CEFUROXIME] [Concomitant]
     Active Substance: CEFUROXIME
     Route: 065
     Dates: start: 20161225, end: 20161227
  31. NOVAMINSULFON [Concomitant]
     Active Substance: METAMIZOLE
     Route: 065
     Dates: start: 20180606, end: 20180607
  32. TRIAMHEXAL [Concomitant]
     Active Substance: TRIAMCINOLONE
     Indication: BACK PAIN
     Route: 065
     Dates: start: 20170504, end: 20170504
  33. TRIAMHEXAL [Concomitant]
     Active Substance: TRIAMCINOLONE
     Route: 065
     Dates: start: 20170608, end: 20170608
  34. CIPROBAY [CIPROFLOXACIN] [Concomitant]
     Route: 065
     Dates: start: 20180122, end: 20180127
  35. IBUFLAM [IBUPROFEN] [Concomitant]
     Active Substance: IBUPROFEN
     Indication: BURSITIS
     Route: 065
     Dates: start: 20180903, end: 20180907
  36. FOSFOMYCIN [Concomitant]
     Active Substance: FOSFOMYCIN
     Route: 048
     Dates: start: 20190823, end: 20190823
  37. OCRELIZUMAB. [Suspect]
     Active Substance: OCRELIZUMAB
     Indication: PRIMARY PROGRESSIVE MULTIPLE SCLEROSIS
     Dosage: OPEN LABEL. ON 19/JAN/2016, THE PATIENT RECEIVED THE MOST RECENT DOSE OF OCRELIZUMAB (260 ML) PRIOR
     Route: 042
     Dates: start: 20160105
  38. FAMPYRA [Concomitant]
     Active Substance: DALFAMPRIDINE
     Route: 065
     Dates: start: 20111128
  39. AMOXICILLIN. [Concomitant]
     Active Substance: AMOXICILLIN
     Indication: ERYSIPELAS
     Route: 065
     Dates: start: 20180507
  40. NOVAMINSULFON [Concomitant]
     Active Substance: METAMIZOLE
     Indication: HEADACHE
     Route: 065
     Dates: start: 20180404, end: 20180404
  41. NOVAMINSULFON [Concomitant]
     Active Substance: METAMIZOLE
     Route: 065
     Dates: start: 20180306, end: 20180308
  42. NOVAMINSULFON [Concomitant]
     Active Substance: METAMIZOLE
     Route: 065
     Dates: start: 20180329, end: 20180402
  43. TRIAMHEXAL [Concomitant]
     Active Substance: TRIAMCINOLONE
     Route: 065
     Dates: start: 20170710, end: 20170710
  44. TRIAMHEXAL [Concomitant]
     Active Substance: TRIAMCINOLONE
     Route: 065
     Dates: start: 20180628, end: 20180628
  45. XARELTO [Concomitant]
     Active Substance: RIVAROXABAN
     Dosage: PROPHYLAXIS EMBOLISM
     Route: 065
     Dates: start: 20171023, end: 20171109
  46. PROCAINE [Concomitant]
     Active Substance: PROCAINE
     Indication: BACK PAIN
     Route: 065
     Dates: start: 20140606, end: 20140606
  47. PROCAINE [Concomitant]
     Active Substance: PROCAINE
     Indication: BACK PAIN
     Route: 065
     Dates: start: 20130906, end: 20130906
  48. PROCAINE [Concomitant]
     Active Substance: PROCAINE
     Route: 065
     Dates: start: 20140210, end: 20140212
  49. LYRICA [Concomitant]
     Active Substance: PREGABALIN
     Indication: MULTIPLE SCLEROSIS
     Route: 065
     Dates: start: 200801
  50. RANITIC [Concomitant]
     Active Substance: RANITIDINE HYDROCHLORIDE
     Indication: PREMEDICATION
     Route: 065
  51. URBASON [METHYLPREDNISOLONE] [Concomitant]
     Active Substance: METHYLPREDNISOLONE
     Dosage: WORSENING OF MSWALKING DISTANCE
     Route: 065
     Dates: start: 20160822, end: 20160824
  52. CARBOSTESIN [Concomitant]
     Active Substance: BUPIVACAINE HYDROCHLORIDE
     Route: 065
     Dates: start: 20170608, end: 20170608
  53. CARBOSTESIN [Concomitant]
     Active Substance: BUPIVACAINE HYDROCHLORIDE
     Route: 065
     Dates: start: 20170710, end: 20170710
  54. DORMICUM (INJ) [Concomitant]
     Active Substance: MIDAZOLAM HYDROCHLORIDE
     Dosage: INDICATION: BOTOX INJECTION IN BLADDER
     Route: 065
     Dates: start: 20150130, end: 20150130
  55. DORMICUM (INJ) [Concomitant]
     Active Substance: MIDAZOLAM HYDROCHLORIDE
     Dosage: INCONTINENCE
     Route: 065
     Dates: start: 20170519, end: 20170519
  56. INFLUENZA VACCINE [Concomitant]
     Active Substance: INFLUENZA VIRUS VACCINE
     Route: 065
     Dates: start: 20180917, end: 20180917
  57. IBUPROFEN. [Concomitant]
     Active Substance: IBUPROFEN
     Indication: HEADACHE
     Route: 065
     Dates: start: 20161231, end: 20161231
  58. IBUPROFEN. [Concomitant]
     Active Substance: IBUPROFEN
     Indication: PYREXIA
     Route: 065
     Dates: start: 20171025, end: 20171025
  59. IBUPROFEN. [Concomitant]
     Active Substance: IBUPROFEN
     Route: 065
     Dates: start: 20170814, end: 20170814
  60. NOVAMINSULFON [Concomitant]
     Active Substance: METAMIZOLE
     Route: 065
     Dates: start: 20180609, end: 20180609
  61. TRIAMHEXAL [Concomitant]
     Active Substance: TRIAMCINOLONE
     Route: 065
     Dates: start: 20181228, end: 20181228
  62. CIPROBAY [CIPROFLOXACIN] [Concomitant]
     Indication: CYSTITIS
     Route: 065
     Dates: start: 20170901, end: 20170909
  63. MOVICOL [Concomitant]
     Active Substance: POLYETHYLENE GLYCOL 3350\POTASSIUM CHLORIDE\SODIUM BICARBONATE\SODIUM CHLORIDE
     Indication: CONSTIPATION
     Route: 065
     Dates: start: 20151106
  64. XYLOCAIN [LIDOCAINE] [Concomitant]
     Indication: TOOTH EXTRACTION
     Route: 065
     Dates: start: 20170814, end: 20170814
  65. AMLODIPINE [Concomitant]
     Active Substance: AMLODIPINE BESYLATE
     Indication: HYPERTENSION
     Route: 065
     Dates: start: 20130614, end: 20160829
  66. TAZOBACTAM [Concomitant]
     Active Substance: TAZOBACTAM
     Route: 042
     Dates: start: 20190904, end: 20190911
  67. PARACETAMOL [Concomitant]
     Active Substance: ACETAMINOPHEN
     Indication: PREMEDICATION
     Route: 065
  68. URBASON [METHYLPREDNISOLONE] [Concomitant]
     Active Substance: METHYLPREDNISOLONE
     Indication: PREMEDICATION
     Route: 065
     Dates: start: 20150219, end: 20150219
  69. CARBOSTESIN [Concomitant]
     Active Substance: BUPIVACAINE HYDROCHLORIDE
     Route: 065
     Dates: start: 20170807, end: 20170807
  70. CEFUROXIM [CEFUROXIME] [Concomitant]
     Active Substance: CEFUROXIME
     Indication: PYREXIA
     Route: 065
     Dates: start: 20160508, end: 20160514
  71. IBUPROFEN. [Concomitant]
     Active Substance: IBUPROFEN
     Route: 065
     Dates: start: 20180106, end: 20180106
  72. IBUPROFEN. [Concomitant]
     Active Substance: IBUPROFEN
     Route: 065
     Dates: start: 20180516, end: 20180516
  73. INSTILLAGEL [Concomitant]
     Active Substance: CHLORHEXIDINE GLUCONATE\LIDOCAINE HYDROCHLORIDE
     Dosage: FOR SELF CATHETERIZATION
     Route: 065
     Dates: start: 20140415
  74. NOVAMINSULFON [Concomitant]
     Active Substance: METAMIZOLE
     Indication: PYREXIA
     Route: 065
     Dates: start: 20181003, end: 20181003
  75. NOVAMINSULFON [Concomitant]
     Active Substance: METAMIZOLE
     Indication: CYSTITIS
     Route: 065
     Dates: start: 20180605, end: 20180605
  76. TRIAMHEXAL [Concomitant]
     Active Substance: TRIAMCINOLONE
     Route: 065
     Dates: start: 20181115, end: 20181115
  77. MIDAZOLAM [Concomitant]
     Active Substance: MIDAZOLAM HYDROCHLORIDE
     Dosage: FOR COLOSCOPY
     Route: 065
     Dates: start: 20140219, end: 20140219
  78. TORASEMIDE [Concomitant]
     Active Substance: TORSEMIDE
     Route: 065
     Dates: start: 20160720, end: 20160803
  79. ACIMETHIN [Concomitant]
     Route: 065
  80. TOREM [TORASEMIDE] [Concomitant]
     Active Substance: TORSEMIDE
     Route: 065
  81. PANTOZOL [Concomitant]
     Active Substance: PANTOPRAZOLE SODIUM
     Indication: GASTROINTESTINAL DISORDER PROPHYLAXIS
     Route: 065
     Dates: start: 20110928
  82. BOTOX [Concomitant]
     Active Substance: ONABOTULINUMTOXINA
     Indication: INCONTINENCE
     Dosage: DOSE: 180
     Route: 065
     Dates: start: 20170519, end: 20170519
  83. CARBOSTESIN [Concomitant]
     Active Substance: BUPIVACAINE HYDROCHLORIDE
     Route: 065
     Dates: start: 20190204, end: 20190204
  84. INFLUENZA VACCINE [Concomitant]
     Active Substance: INFLUENZA VIRUS VACCINE
     Indication: ANTIVIRAL PROPHYLAXIS
     Route: 065
     Dates: start: 20170904, end: 20170904
  85. MIDAZOLAM [Concomitant]
     Active Substance: MIDAZOLAM HYDROCHLORIDE
     Dosage: FOR COLOSCOPY
     Route: 065
     Dates: start: 20140219, end: 20140219
  86. TRIAMHEXAL [Concomitant]
     Active Substance: TRIAMCINOLONE
     Route: 065
     Dates: start: 20170807, end: 20170807
  87. PROCAINE [Concomitant]
     Active Substance: PROCAINE
     Route: 065
     Dates: start: 20150707, end: 20150709
  88. PROCAINE [Concomitant]
     Active Substance: PROCAINE
     Route: 065
     Dates: start: 20140610, end: 20140612
  89. PROCAINE [Concomitant]
     Active Substance: PROCAINE
     Route: 065
     Dates: start: 20130909, end: 20130910
  90. FAMPYRA [Concomitant]
     Active Substance: DALFAMPRIDINE
     Route: 065
  91. AMOXICILLIN. [Concomitant]
     Active Substance: AMOXICILLIN
     Route: 065
     Dates: start: 20181113, end: 20181116
  92. CARBOSTESIN [Concomitant]
     Active Substance: BUPIVACAINE HYDROCHLORIDE
     Route: 065
     Dates: start: 20181115, end: 20181115
  93. COTRIM FORTE [Concomitant]
     Active Substance: SULFAMETHOXAZOLE\TRIMETHOPRIM
     Indication: INCONTINENCE
     Route: 065
     Dates: start: 20170519, end: 20170519
  94. IBUPROFEN. [Concomitant]
     Active Substance: IBUPROFEN
     Indication: ERYSIPELAS
     Route: 065
     Dates: start: 20170103, end: 20170103
  95. IBUPROFEN. [Concomitant]
     Active Substance: IBUPROFEN
     Route: 065
     Dates: start: 20170812, end: 20170812
  96. NOVAMINSULFON [Concomitant]
     Active Substance: METAMIZOLE
     Route: 065
     Dates: start: 20180309, end: 20180309
  97. NOVAMINSULFON [Concomitant]
     Active Substance: METAMIZOLE
     Route: 065
     Dates: start: 20190216, end: 20190217
  98. NOVAMINSULFON [Concomitant]
     Active Substance: METAMIZOLE
     Route: 065
     Dates: start: 20181221, end: 20181222
  99. TRIAMHEXAL [Concomitant]
     Active Substance: TRIAMCINOLONE
     Route: 065
     Dates: start: 20171113, end: 20171113
  100. XARELTO [Concomitant]
     Active Substance: RIVAROXABAN
     Indication: THROMBOSIS PROPHYLAXIS
     Dosage: PROPHYLAXIS EMBOLISM
     Route: 065
     Dates: start: 20171110

REACTIONS (3)
  - Urinary tract infection [Recovered/Resolved]
  - Cystitis [Recovered/Resolved]
  - Urinary tract infection [Recovered/Resolved]

NARRATIVE: CASE EVENT DATE: 20160407
